FAERS Safety Report 15331927 (Version 1)
Quarter: 2018Q4

REPORT INFORMATION
  Report Type: Spontaneous
  Country: US (occurrence: US)
  Receive Date: 20180829
  Receipt Date: 20180829
  Transmission Date: 20190204
  Serious: No
  Sender: FDA-Public Use
  Company Number: US-AKRON, INC.-2054445

PATIENT
  Sex: Male

DRUGS (1)
  1. LIDOCAINE HCL ORAL TOPICAL USP 2% VISCOUS SOLUTION [Suspect]
     Active Substance: LIDOCAINE HYDROCHLORIDE
     Route: 048

REACTIONS (2)
  - Hypersensitivity [Recovering/Resolving]
  - Tongue ulceration [Recovering/Resolving]
